FAERS Safety Report 7046025-1 (Version None)
Quarter: 2010Q4

REPORT INFORMATION
  Report Type: 
  Country: None (occurrence: None)
  Receive Date: 20101013
  Receipt Date: 20101013
  Transmission Date: 20110411
  Serious: No
  Sender: FDA-Public Use
  Company Number: None

PATIENT
  Age: 50 Year
  Sex: Male
  Weight: 90 kg

DRUGS (1)
  1. ANECTINE [Suspect]
     Indication: SURGERY
     Dosage: 160MG ONCE IV
     Route: 042
     Dates: start: 20101007, end: 20101007

REACTIONS (1)
  - DRUG INEFFECTIVE [None]
